FAERS Safety Report 4439503-2 (Version None)
Quarter: 2004Q3

REPORT INFORMATION
  Report Type: 
  Country: None (occurrence: None)
  Receive Date: 20040830
  Receipt Date: 20040817
  Transmission Date: 20050211
  Serious: Yes (Death, Hospitalization)
  Sender: FDA-Public Use
  Company Number: 2004056775

PATIENT
  Age: 72 Year
  Sex: Male

DRUGS (1)
  1. ATORVASTATIN CALCIUM [Suspect]
     Indication: ILL-DEFINED DISORDER
     Dosage: 40 MG (40 MG, 1 IN 1 D), ORAL
     Route: 048
     Dates: end: 20040529

REACTIONS (21)
  - ANAEMIA [None]
  - BLOOD ALBUMIN DECREASED [None]
  - CHOLESTASIS [None]
  - COAGULATION FACTOR V LEVEL DECREASED [None]
  - COLONIC POLYP [None]
  - CONSTIPATION [None]
  - CYANOSIS [None]
  - CYTOLYTIC HEPATITIS [None]
  - CYTOMEGALOVIRUS TEST POSITIVE [None]
  - DIVERTICULUM DUODENAL [None]
  - GASTRITIS [None]
  - GENERAL PHYSICAL HEALTH DETERIORATION [None]
  - HEPATIC ENCEPHALOPATHY [None]
  - HEPATITIS INFECTIOUS [None]
  - HEPATOMEGALY [None]
  - HEPATORENAL SYNDROME [None]
  - NOSOCOMIAL INFECTION [None]
  - PNEUMONIA ESCHERICHIA [None]
  - PROTHROMBIN TIME RATIO DECREASED [None]
  - RENAL FAILURE [None]
  - SEPTIC SHOCK [None]
